FAERS Safety Report 6911996-8 (Version None)
Quarter: 2010Q3

REPORT INFORMATION
  Report Type: 
  Country: None (occurrence: None)
  Receive Date: 20100806
  Receipt Date: 20100730
  Transmission Date: 20110219
  Serious: Yes (Other)
  Sender: FDA-Public Use
  Company Number: US-SANOFI-AVENTIS-2010SA045862

PATIENT
  Age: 63 Year
  Sex: Male

DRUGS (3)
  1. UROXATRAL [Suspect]
     Indication: BENIGN PROSTATIC HYPERPLASIA
     Route: 048
     Dates: start: 20080101, end: 20100802
  2. METOPROLOL [Concomitant]
     Indication: HYPERTENSION
  3. AVAPRO [Concomitant]

REACTIONS (1)
  - HYPERTROPHIC CARDIOMYOPATHY [None]
